FAERS Safety Report 7621035-1 (Version None)
Quarter: 2011Q3

REPORT INFORMATION
  Report Type: 
  Country: None (occurrence: None)
  Receive Date: 20110719
  Receipt Date: 20100826
  Transmission Date: 20111222
  Serious: No
  Sender: FDA-Public Use
  Company Number: US-KINGPHARMUSA00001-K201001082

PATIENT
  Sex: Female
  Weight: 60.771 kg

DRUGS (3)
  1. LEVOXYL [Suspect]
     Indication: THYROID DISORDER
     Dosage: 25 MCG, QD
     Route: 048
     Dates: start: 20100703
  2. LISINOPRIL [Concomitant]
     Dosage: 20 MG, UNK
     Dates: start: 20070101
  3. DOXYCYCLINE HYCLATE [Suspect]
     Indication: FOLLICULITIS
     Dosage: 100 MG, QD
     Route: 048
     Dates: start: 20100704, end: 20100706

REACTIONS (3)
  - ERYTHEMA [None]
  - DISCOMFORT [None]
  - RASH PRURITIC [None]
